FAERS Safety Report 24247878 (Version 5)
Quarter: 2025Q3

REPORT INFORMATION
  Report Type: Report from Study
  Country: US (occurrence: US)
  Receive Date: 20240826
  Receipt Date: 20250810
  Transmission Date: 20251020
  Serious: No
  Sender: ALEXION PHARMACEUTICALS
  Company Number: US-ALXN-202408USA001222US

PATIENT
  Age: 43 Year
  Sex: Female
  Weight: 63.492 kg

DRUGS (1)
  1. STRENSIQ [Suspect]
     Active Substance: ASFOTASE ALFA
     Indication: Hypophosphatasia
     Dosage: 13.2 MILLIGRAM, TIW
     Route: 065
     Dates: start: 202408

REACTIONS (7)
  - Injection site erythema [Recovered/Resolved]
  - Injection site rash [Not Recovered/Not Resolved]
  - Injection site pruritus [Recovering/Resolving]
  - Drug hypersensitivity [Unknown]
  - Asthma [Unknown]
  - Injection site bruising [Unknown]
  - Histamine level increased [Unknown]

NARRATIVE: CASE EVENT DATE: 20240816
